FAERS Safety Report 4549618-6 (Version None)
Quarter: 2005Q1

REPORT INFORMATION
  Report Type: 
  Country: None (occurrence: None)
  Receive Date: 20050106
  Receipt Date: 20041229
  Transmission Date: 20050727
  Serious: Yes (Other)
  Sender: FDA-Public Use
  Company Number: 2003024032

PATIENT
  Age: 71 Year
  Sex: Male
  Weight: 83.9154 kg

DRUGS (16)
  1. GLIPIZIDE [Suspect]
     Indication: DIABETES MELLITUS
     Dosage: 10 MG (2 IN 1 D), ORAL
     Route: 048
     Dates: end: 20030501
  2. TIKOSYN [Suspect]
     Indication: ATRIAL FIBRILLATION
     Dosage: (BID), ORAL
     Route: 048
     Dates: start: 20020101, end: 20030711
  3. ASPIRIN [Suspect]
     Indication: ANTICOAGULANT THERAPY
     Dosage: 325 MG (DAILY)
     Dates: end: 20030527
  4. CLOPIDOGREL BISULFATE [Suspect]
     Indication: THROMBOSIS
     Dosage: 75 MG (DAILY)
     Dates: end: 20030529
  5. MAALOX (ALUMINIUM HYDROXIDE GEL, MAGNESIUM HYDROXIDE) [Suspect]
     Indication: FLATULENCE
  6. FINASTERIDE [Concomitant]
  7. SIMVASTATIN [Concomitant]
  8. LISINOPRIL [Concomitant]
  9. PIOGLITZONE (PIOGLITAZONE) [Concomitant]
  10. ATENOLOL [Concomitant]
  11. TOCOPHEROL CONCENTRATE CAP [Concomitant]
  12. ASCORBIC ACID [Concomitant]
  13. ZINC (ZINC) [Concomitant]
  14. FOLIC ACID [Concomitant]
  15. SENNA FRUIT (SENNA FRUIT) [Concomitant]
  16. PSYLLIUM HYDROPHILIC MUCILLOID (PSYLLIUM HYDROPHILIC MUCILLOID) [Concomitant]

REACTIONS (7)
  - ATRIAL FIBRILLATION [None]
  - BURNING SENSATION [None]
  - FLATULENCE [None]
  - HEART RATE DECREASED [None]
  - HEART RATE INCREASED [None]
  - NIGHT SWEATS [None]
  - RASH PRURITIC [None]
